FAERS Safety Report 10190853 (Version 1)
Quarter: 2014Q2

REPORT INFORMATION
  Report Type: Spontaneous
  Country: US (occurrence: None)
  Receive Date: 20140521
  Receipt Date: 20140521
  Transmission Date: 20141212
  Serious: Yes (Disabling)
  Sender: FDA-Public Use
  Company Number: None

PATIENT
  Age: 52 Year
  Sex: Female
  Weight: 102.06 kg

DRUGS (2)
  1. ATORVASTATIN [Suspect]
     Indication: LOW DENSITY LIPOPROTEIN INCREASED
     Dosage: OVER 5 YEARS, 2 PILLS AT 20 MGS EACH, AT BEDTIME, TAKEN MY MOUTH
     Route: 048
  2. ATORVASTATIN [Suspect]
     Indication: THERAPY CHANGE
     Dosage: OVER 5 YEARS, 2 PILLS AT 20 MGS EACH, AT BEDTIME, TAKEN MY MOUTH
     Route: 048

REACTIONS (5)
  - Muscle spasms [None]
  - VIIth nerve paralysis [None]
  - Insomnia [None]
  - Pain [None]
  - Thyroid cancer [None]
